FAERS Safety Report 8902016 (Version 1)
Quarter: 2012Q4

REPORT INFORMATION
  Report Type: 
  Country: AU (occurrence: AU)
  Receive Date: 20121112
  Receipt Date: 20121112
  Transmission Date: 20130627
  Serious: Yes (Death, Hospitalization, Other)
  Sender: FDA-Public Use
  Company Number: AU-ROCHE-CID000000002222288

PATIENT
  Age: 64 Year
  Sex: Female

DRUGS (4)
  1. ZELBORAF [Suspect]
     Indication: METASTATIC MALIGNANT MELANOMA
     Route: 048
     Dates: start: 20120905, end: 20121015
  2. DEXAMETHASONE [Concomitant]
     Route: 048
     Dates: start: 201210
  3. FENTANYL PATCH [Concomitant]
     Dosage: 50 mcg/l
     Route: 061
     Dates: start: 201209
  4. OMEPRAZOLE [Concomitant]
     Route: 048
     Dates: start: 20120810

REACTIONS (3)
  - Hepatitis [Recovering/Resolving]
  - Cerebral disorder [Unknown]
  - Disease progression [Fatal]
